FAERS Safety Report 16131998 (Version 3)
Quarter: 2019Q2

REPORT INFORMATION
  Report Type: Spontaneous
  Country: US (occurrence: US)
  Receive Date: 20190329
  Receipt Date: 20190527
  Transmission Date: 20190711
  Serious: No
  Sender: FDA-Public Use
  Company Number: US-AMGEN-USASP2019046795

PATIENT
  Age: 84 Year
  Sex: Female
  Weight: 50.79 kg

DRUGS (1)
  1. PROLIA [Suspect]
     Active Substance: DENOSUMAB
     Indication: OSTEOPOROSIS POSTMENOPAUSAL
     Dosage: 60 MILLIGRAM, Q6MO
     Route: 065
     Dates: start: 20190101

REACTIONS (8)
  - Road traffic accident [Unknown]
  - Feeling abnormal [Unknown]
  - Pruritus [Unknown]
  - Depression [Unknown]
  - Bone pain [Unknown]
  - Lethargy [Unknown]
  - Disorientation [Unknown]
  - Disturbance in attention [Unknown]

NARRATIVE: CASE EVENT DATE: 20190103
